FAERS Safety Report 5137027-0 (Version None)
Quarter: 2006Q4

REPORT INFORMATION
  Report Type: 
  Country: None (occurrence: None)
  Receive Date: 20061024
  Receipt Date: 20061024
  Transmission Date: 20070319
  Serious: Yes (Hospitalization)
  Sender: FDA-Public Use
  Company Number: None

PATIENT
  Age: 82 Year
  Sex: Male
  Weight: 81.6475 kg

DRUGS (3)
  1. FUROSEMIDE [Suspect]
     Indication: CARDIAC FAILURE CONGESTIVE
     Dosage: 20 MG DAILY
     Dates: start: 20040901, end: 20060814
  2. SPIRONOLACTONE [Suspect]
     Indication: CARDIAC FAILURE CONGESTIVE
     Dosage: 25 MG DAILY
     Dates: start: 20040601, end: 20060814
  3. HCTZ 25/LISINOPRIL [Suspect]
     Dates: start: 20021201, end: 20060814

REACTIONS (2)
  - ASTHENIA [None]
  - DEHYDRATION [None]
